FAERS Safety Report 5195943-8 (Version None)
Quarter: 2007Q1

REPORT INFORMATION
  Report Type: 
  Country: None (occurrence: None)
  Receive Date: 20070102
  Receipt Date: 20061219
  Transmission Date: 20070707
  Serious: Yes (Hospitalization, Other)
  Sender: FDA-Public Use
  Company Number: US-ELI_LILLY_AND_COMPANY-US200612003892

PATIENT
  Age: 79 Year
  Sex: Female

DRUGS (4)
  1. FORTEO [Suspect]
     Dates: start: 20060101
  2. ASPIRIN [Concomitant]
     Dosage: 81 MG, DAILY (1/D)
  3. GARLIC [Concomitant]
  4. VITAMIN E [Concomitant]

REACTIONS (3)
  - BREAST CANCER STAGE I [None]
  - BREAST MASS [None]
  - HAEMATOCHEZIA [None]
